FAERS Safety Report 4956307-2 (Version None)
Quarter: 2006Q1

REPORT INFORMATION
  Report Type: 
  Country: None (occurrence: None)
  Receive Date: 20060323
  Receipt Date: 20060310
  Transmission Date: 20060701
  Serious: Yes (Death)
  Sender: FDA-Public Use
  Company Number: GXKR2006KP01604

PATIENT
  Age: 55 Year
  Sex: Female

DRUGS (4)
  1. PREDNISOLONE [Suspect]
     Indication: CHEMOTHERAPY
     Dosage: 3 CYCLES
  2. VINCRISTINE [Suspect]
     Indication: CHEMOTHERAPY
     Dosage: 3 CYCLES
  3. DOXORUBICIN HCL [Suspect]
     Dosage: 3 CYCLES
  4. CYCLOPHOSPHAMIDE [Suspect]
     Indication: CHEMOTHERAPY
     Dosage: 3 CYCLES

REACTIONS (2)
  - DISEASE PROGRESSION [None]
  - SEPSIS [None]
